FAERS Safety Report 10044689 (Version 1)
Quarter: 2014Q1

REPORT INFORMATION
  Report Type: Report from Study
  Country: IT (occurrence: IT)
  Receive Date: 20140328
  Receipt Date: 20140328
  Transmission Date: 20141002
  Serious: Yes (Hospitalization)
  Sender: FDA-Public Use
  Company Number: IT-AMGEN-ITANI2014020734

PATIENT
  Age: 81 Year
  Sex: Male

DRUGS (6)
  1. PEGFILGRASTIM [Suspect]
     Indication: NON-HODGKIN^S LYMPHOMA
     Dosage: 6 MG, UNK
     Route: 058
     Dates: start: 20070927
  2. ETOPOSIDE [Concomitant]
     Indication: NON-HODGKIN^S LYMPHOMA
     Dosage: 100 MG, QD
     Route: 042
     Dates: start: 20070924
  3. CYTARABINE [Concomitant]
     Indication: NON-HODGKIN^S LYMPHOMA
     Dosage: 1 G, BID
     Route: 042
     Dates: start: 20070924
  4. CARBOPLATIN [Concomitant]
     Indication: NON-HODGKIN^S LYMPHOMA
     Dosage: 300 MG, QD
     Route: 042
     Dates: start: 20070924
  5. DUROGESIC [Concomitant]
     Dosage: 50 MG/72H
     Dates: start: 20070920
  6. FUROSEMIDE [Concomitant]
     Dosage: 10 MG, QD
     Route: 048
     Dates: start: 20070924

REACTIONS (1)
  - Febrile neutropenia [Recovered/Resolved]
